FAERS Safety Report 9219842 (Version 3)
Quarter: 2013Q3

REPORT INFORMATION
  Report Type: Spontaneous
  Country: AU (occurrence: AU)
  Receive Date: 20130409
  Receipt Date: 20130722
  Transmission Date: 20140515
  Serious: Yes (Life-Threatening, Hospitalization, Other)
  Sender: FDA-Public Use
  Company Number: US-ASTRAZENECA-2013SE22361

PATIENT
  Age: 80 Year
  Sex: Male

DRUGS (9)
  1. NAROPIN [Suspect]
     Route: 008
     Dates: start: 20110629
  2. FENTANYL [Suspect]
     Route: 008
     Dates: start: 20110629
  3. ADRENALINE [Suspect]
     Route: 008
     Dates: start: 20110629
  4. PLACEBO [Suspect]
     Indication: TYPE 2 DIABETES MELLITUS
     Route: 048
     Dates: start: 20110217, end: 20110629
  5. PLACEBO [Suspect]
     Indication: TYPE 2 DIABETES MELLITUS
     Route: 048
     Dates: start: 20110711, end: 20130206
  6. HUMALOG [Suspect]
     Indication: TYPE 2 DIABETES MELLITUS
     Dosage: UNK-17MAY12-18IU/UNITS 18MAY12-CON-26IU/UNITS
     Dates: end: 20120517
  7. LEVEMIR [Suspect]
     Indication: TYPE 2 DIABETES MELLITUS
     Dosage: UNK-17MAY12-26IU/UNITS 18MAY12-CON-72IU/UNITS
     Dates: end: 20120517
  8. ASPIRIN [Concomitant]
     Dosage: 1DF:{100MG
     Dates: start: 20110512
  9. EZETIMIBE [Concomitant]
     Route: 065
     Dates: start: 20110512

REACTIONS (5)
  - Sick sinus syndrome [Recovered/Resolved]
  - Hypotension [Recovered/Resolved]
  - Thrombocytopenia [Recovered/Resolved]
  - Post procedural haemorrhage [Recovered/Resolved]
  - Anaemia [Recovered/Resolved]
